FAERS Safety Report 5412244-0 (Version None)
Quarter: 2007Q3

REPORT INFORMATION
  Report Type: 
  Country: None (occurrence: None)
  Receive Date: 20070810
  Receipt Date: 20070810
  Transmission Date: 20080115
  Serious: Yes (Hospitalization)
  Sender: FDA-Public Use
  Company Number: None

PATIENT
  Age: 68 Year
  Sex: Male

DRUGS (4)
  1. SIMVASTATIN [Suspect]
     Indication: HYPERLIPIDAEMIA
     Dosage: 80MG PM PO
     Route: 048
     Dates: start: 20050705, end: 20070619
  2. CYANOCOBALAMIN [Concomitant]
  3. FUROSEMIDE [Concomitant]
  4. METOPROLOL SUCCINATE [Concomitant]

REACTIONS (3)
  - DEPRESSED MOOD [None]
  - MUSCULAR WEAKNESS [None]
  - RHABDOMYOLYSIS [None]
